FAERS Safety Report 8474013-7 (Version None)
Quarter: 2012Q2

REPORT INFORMATION
  Report Type: 
  Country: None (occurrence: None)
  Receive Date: 20120628
  Receipt Date: 20120621
  Transmission Date: 20120825
  Serious: Yes (Other)
  Sender: FDA-Public Use
  Company Number: US-MYLANLABS-2012S1006488

PATIENT
  Age: 44 Year
  Sex: Male

DRUGS (11)
  1. CLOZAPINE [Suspect]
     Dates: start: 20120401, end: 20120530
  2. BENZTROPINE MESYLATE [Concomitant]
  3. DEPAKOTE [Concomitant]
  4. CLOZAPINE [Suspect]
     Route: 048
     Dates: start: 20120604, end: 20120617
  5. M.V.I. [Concomitant]
  6. CLOZAPINE [Suspect]
     Route: 048
     Dates: start: 20120604, end: 20120617
  7. FOLIC ACID [Concomitant]
  8. DOCUSATE [Concomitant]
  9. TRIFLUOPERAZINE HCL [Concomitant]
  10. CLOZAPINE [Suspect]
     Dates: end: 20120401
  11. CALCIUM PLUS VITAMIN D [Concomitant]

REACTIONS (1)
  - GRANULOCYTOPENIA [None]
